FAERS Safety Report 23678246 (Version 2)
Quarter: 2024Q2

REPORT INFORMATION
  Report Type: Spontaneous
  Country: US (occurrence: None)
  Receive Date: 20240327
  Receipt Date: 20240408
  Transmission Date: 20240715
  Serious: Yes (Hospitalization)
  Sender: FDA-Public Use
  Company Number: US-FARMAPROD-202307-2041

PATIENT
  Age: 90 Year
  Sex: Female
  Weight: 68.1 kg

DRUGS (13)
  1. OXERVATE [Suspect]
     Active Substance: CENEGERMIN-BKBJ
     Indication: Neurotrophic keratopathy
     Route: 047
     Dates: start: 20230613, end: 20230817
  2. OXERVATE [Suspect]
     Active Substance: CENEGERMIN-BKBJ
     Indication: Ulcerative keratitis
     Route: 047
     Dates: start: 20240131
  3. OXERVATE [Suspect]
     Active Substance: CENEGERMIN-BKBJ
     Indication: Hypoaesthesia eye
  4. SLEEP AID [Concomitant]
  5. PRADAXA [Concomitant]
     Active Substance: DABIGATRAN ETEXILATE MESYLATE
  6. TRIFLURIDINE [Concomitant]
     Active Substance: TRIFLURIDINE
  7. PRAMIPEXOLE DIHYDROCHLORIDE [Concomitant]
     Active Substance: PRAMIPEXOLE DIHYDROCHLORIDE
  8. NEBIVOLOL [Concomitant]
     Active Substance: NEBIVOLOL
  9. FUROSEMIDE [Concomitant]
     Active Substance: FUROSEMIDE
  10. LOSARTAN POTASSIUM [Concomitant]
     Active Substance: LOSARTAN POTASSIUM
  11. LEVOTHYROXINE SODIUM [Concomitant]
     Active Substance: LEVOTHYROXINE SODIUM
  12. ALBUTEROL\IPRATROPIUM [Concomitant]
     Active Substance: ALBUTEROL\IPRATROPIUM
     Dosage: NEBULIZER EACH
  13. KLOR-CON M20 [Concomitant]
     Active Substance: POTASSIUM CHLORIDE

REACTIONS (10)
  - Cardiac disorder [Recovered/Resolved]
  - Product administration error [Unknown]
  - Wrong technique in product usage process [Unknown]
  - Product dose omission issue [Recovered/Resolved]
  - Therapy partial responder [Unknown]
  - Ocular discomfort [Unknown]
  - Dry eye [Unknown]
  - Eye pain [Not Recovered/Not Resolved]
  - Oropharyngeal pain [Unknown]
  - Product storage error [Unknown]

NARRATIVE: CASE EVENT DATE: 20240301
